FAERS Safety Report 5102522-7 (Version None)
Quarter: 2006Q3

REPORT INFORMATION
  Report Type: 
  Country: None (occurrence: None)
  Receive Date: 20060912
  Receipt Date: 20060905
  Transmission Date: 20061208
  Serious: Yes (Hospitalization)
  Sender: FDA-Public Use
  Company Number: 2006CG01463

PATIENT
  Age: 34 Year
  Sex: Female

DRUGS (1)
  1. ZOMIGORO [Suspect]
     Indication: HEADACHE
     Route: 048
     Dates: end: 20050822

REACTIONS (2)
  - DRUG DEPENDENCE [None]
  - HEADACHE [None]
